FAERS Safety Report 26155404 (Version 1)
Quarter: 2025Q4

REPORT INFORMATION
  Report Type: Spontaneous
  Country: BR (occurrence: BR)
  Receive Date: 20251215
  Receipt Date: 20251215
  Transmission Date: 20260118
  Serious: Yes (Other)
  Sender: ROCHE
  Company Number: BR-ROCHE-10000452588

PATIENT

DRUGS (1)
  1. BEVACIZUMAB [Suspect]
     Active Substance: BEVACIZUMAB
     Indication: Age-related macular degeneration
     Dosage: ONE INTRAVITREAL OF BEVACIZUMAB

REACTIONS (12)
  - Off label use [Unknown]
  - Retinal haemorrhage [Unknown]
  - Macular oedema [Unknown]
  - Eye inflammation [Unknown]
  - Retinal disorder [Unknown]
  - Retinal cyst [Unknown]
  - Retinal oedema [Unknown]
  - Subretinal fibrosis [Unknown]
  - Choroidal neovascularisation [Unknown]
  - Subretinal fluid [Unknown]
  - Eye oedema [Unknown]
  - Optical coherence tomography abnormal [Unknown]
